FAERS Safety Report 22253662 (Version 2)
Quarter: 2023Q2

REPORT INFORMATION
  Report Type: Other
  Country: JP (occurrence: JP)
  Receive Date: 20230426
  Receipt Date: 20230518
  Transmission Date: 20230722
  Serious: Yes (Life-Threatening)
  Sender: FDA-Public Use
  Company Number: JP-CHUGAI-2023014477

PATIENT
  Age: 53 Year
  Sex: Male

DRUGS (4)
  1. ACTEMRA [Suspect]
     Active Substance: TOCILIZUMAB
     Indication: Castleman^s disease
     Route: 041
  2. PREDNISOLONE [Concomitant]
     Active Substance: PREDNISOLONE
     Indication: Castleman^s disease
     Dosage: UNK
     Route: 065
  3. CYCLOSPORINE [Concomitant]
     Active Substance: CYCLOSPORINE
     Indication: Castleman^s disease
     Dosage: UNK
     Route: 065
  4. BELIMUMAB [Concomitant]
     Active Substance: BELIMUMAB
     Indication: Castleman^s disease
     Dosage: 10 MILLIGRAM/KILOGRAM
     Route: 065

REACTIONS (3)
  - Necrotising fasciitis [Recovered/Resolved]
  - Septic shock [Recovered/Resolved]
  - Off label use [Unknown]
